FAERS Safety Report 5670860-5 (Version None)
Quarter: 2008Q1

REPORT INFORMATION
  Report Type: 
  Country: None (occurrence: None)
  Receive Date: 20080318
  Receipt Date: 20080307
  Transmission Date: 20080703
  Serious: Yes (Hospitalization)
  Sender: FDA-Public Use
  Company Number: AU-MERCK-0803AUS00094

PATIENT
  Age: 85 Year
  Sex: Female

DRUGS (2)
  1. FOSAMAX [Suspect]
     Indication: OSTEOPOROSIS
     Route: 048
     Dates: start: 19990101
  2. [THERAPY UNSPECIFIED] [Concomitant]
     Indication: HYPERLIPIDAEMIA
     Route: 065

REACTIONS (3)
  - FALL [None]
  - FATIGUE [None]
  - UPPER LIMB FRACTURE [None]
